FAERS Safety Report 6106929-0 (Version None)
Quarter: 2009Q1

REPORT INFORMATION
  Report Type: 
  Country: None (occurrence: None)
  Receive Date: 20090309
  Receipt Date: 20090227
  Transmission Date: 20090719
  Serious: Yes (Hospitalization)
  Sender: FDA-Public Use
  Company Number: US-RANBAXY-2009RR-22190

PATIENT
  Age: 51 Year
  Sex: Female

DRUGS (4)
  1. FUROSEMIDE [Suspect]
     Indication: FLUID OVERLOAD
     Dosage: 120 MG, TID
     Route: 042
  2. FUROSEMIDE [Suspect]
     Dosage: 80 MG, TID
  3. FUROSEMIDE [Suspect]
     Dosage: 80 MG, BID
  4. FUROSEMIDE [Suspect]
     Dosage: 60 MG, TID

REACTIONS (1)
  - DEAFNESS NEUROSENSORY [None]
